FAERS Safety Report 7314625-7 (Version None)
Quarter: 2011Q1

REPORT INFORMATION
  Report Type: 
  Country: None (occurrence: None)
  Receive Date: 20110225
  Receipt Date: 20101110
  Transmission Date: 20110831
  Serious: No
  Sender: FDA-Public Use
  Company Number: US-MYLANLABS-2010S1019377

PATIENT
  Sex: Female

DRUGS (5)
  1. AMNESTEEM [Suspect]
     Indication: ACNE
     Route: 048
     Dates: start: 20100722, end: 20101006
  2. CLONIDINE [Concomitant]
  3. CELEXA [Concomitant]
  4. ALLEGRA [Concomitant]
  5. VYVANSE [Concomitant]

REACTIONS (6)
  - PAIN IN EXTREMITY [None]
  - MOOD SWINGS [None]
  - BURNING SENSATION [None]
  - OFF LABEL USE [None]
  - CONSTIPATION [None]
  - ABDOMINAL PAIN UPPER [None]
